FAERS Safety Report 5608584-2 (Version None)
Quarter: 2008Q1

REPORT INFORMATION
  Report Type: 
  Country: None (occurrence: None)
  Receive Date: 20080111
  Receipt Date: 20070913
  Transmission Date: 20080703
  Serious: Yes (Other)
  Sender: FDA-Public Use
  Company Number: HQWYE162114SEP07

PATIENT
  Age: 55 Year
  Sex: Female
  Weight: 68.1 kg

DRUGS (1)
  1. PREMPRO [Suspect]
     Indication: MENOPAUSE
     Dosage: 2.5 MG 1 X PER 1 DAY, ORAL
     Route: 048
     Dates: start: 20020516, end: 20070813

REACTIONS (1)
  - BREAST CANCER [None]
